FAERS Safety Report 8166021-0 (Version None)
Quarter: 2012Q1

REPORT INFORMATION
  Report Type: 
  Country: None (occurrence: None)
  Receive Date: 20120227
  Receipt Date: 20110325
  Transmission Date: 20120608
  Serious: No
  Sender: FDA-Public Use
  Company Number: US-MYLANLABS-2011S1003102

PATIENT
  Age: 24 Year
  Sex: Male
  Weight: 80.74 kg

DRUGS (7)
  1. AMBIEN [Concomitant]
  2. DOCUSATE [Concomitant]
  3. NAPROXEN [Concomitant]
  4. AMNESTEEM [Suspect]
     Indication: ACNE CONGLOBATA
     Dates: start: 20101228, end: 20110120
  5. PREDNISONE TAB [Concomitant]
  6. ACETAMINOPHEN AND HYDROCODONE BITARTRATE [Concomitant]
     Dosage: 325MG/5MG
  7. MOBIC [Concomitant]

REACTIONS (3)
  - CONDITION AGGRAVATED [None]
  - NIGHTMARE [None]
  - ABNORMAL DREAMS [None]
